FAERS Safety Report 6694387-7 (Version None)
Quarter: 2010Q2

REPORT INFORMATION
  Report Type: 
  Country: None (occurrence: None)
  Receive Date: 20100423
  Receipt Date: 20100413
  Transmission Date: 20101027
  Serious: Yes (Hospitalization)
  Sender: FDA-Public Use
  Company Number: FR-NOVOPROD-307067

PATIENT
  Age: 89 Year
  Sex: Female

DRUGS (10)
  1. NOVONORM [Suspect]
     Indication: TYPE 2 DIABETES MELLITUS
     Dosage: 2 MG MORNING AND EVENING AND 1 MG AT NOON
     Route: 048
  2. RENNIE                             /00219301/ [Suspect]
     Indication: DRUG USE FOR UNKNOWN INDICATION
     Dosage: 3 TAB, UNK
     Route: 048
     Dates: start: 20100225, end: 20100225
  3. COVERSYL                           /00790701/ [Suspect]
     Indication: HYPERTENSION
     Dosage: 4 MG, QD
     Route: 048
     Dates: end: 20100226
  4. FLUDEX                             /00340101/ [Suspect]
     Indication: HYPERTENSION
     Dosage: 1.5 MG, QD
     Route: 048
  5. TAHOR [Suspect]
     Indication: DRUG USE FOR UNKNOWN INDICATION
     Dosage: 40 MG, QD
     Route: 048
  6. PLAVIX [Suspect]
     Indication: MYOCARDIAL ISCHAEMIA
     Dosage: 75 MG, QD
     Route: 048
  7. ZOPICLONE [Suspect]
     Indication: DRUG USE FOR UNKNOWN INDICATION
     Dosage: 1 TAB, QD AT BEDTIME
  8. CELIPROLOL [Suspect]
     Indication: MYOCARDIAL ISCHAEMIA
     Dosage: 200 MG, QD
     Route: 048
  9. LEVOTHYROX [Suspect]
     Indication: GOITRE
     Dosage: 25 UG, QD
     Route: 048
  10. ATARAX [Suspect]
     Indication: DRUG USE FOR UNKNOWN INDICATION
     Dosage: 1 TAB, QD AT BEDTIME
     Route: 048

REACTIONS (3)
  - DYSPHAGIA [None]
  - LOCALISED OEDEMA [None]
  - TONGUE OEDEMA [None]
